FAERS Safety Report 10704884 (Version 3)
Quarter: 2020Q2

REPORT INFORMATION
  Report Type: Spontaneous
  Country: US (occurrence: US)
  Receive Date: 20150112
  Receipt Date: 20200616
  Transmission Date: 20200713
  Serious: Yes (Other)
  Sender: FDA-Public Use
  Company Number: US-ABBVIE-15P-163-1330863-00

PATIENT
  Age: 12 Year
  Sex: Female
  Weight: 44 kg

DRUGS (5)
  1. CARBAMAZEPINE. [Concomitant]
     Active Substance: CARBAMAZEPINE
     Indication: SEIZURE
     Route: 048
  2. DIVALPROEX SODIUM. [Suspect]
     Active Substance: DIVALPROEX SODIUM
     Indication: FOCAL DYSCOGNITIVE SEIZURES
     Dosage: BEGAN AT 10 YEARS, 7 MONTHS OF AGE
     Route: 048
  3. CARBAMAZEPINE. [Concomitant]
     Active Substance: CARBAMAZEPINE
     Route: 048
  4. DIVALPROEX SODIUM. [Suspect]
     Active Substance: DIVALPROEX SODIUM
     Route: 065
  5. DIVALPROEX SODIUM. [Suspect]
     Active Substance: DIVALPROEX SODIUM
     Route: 065

REACTIONS (6)
  - Hypothalamo-pituitary disorder [Recovered/Resolved]
  - Intellectual disability [Unknown]
  - Weight decreased [Recovered/Resolved]
  - Growth retardation [Recovered/Resolved]
  - Delayed puberty [Recovered/Resolved]
  - Hypogonadism female [Unknown]
